FAERS Safety Report 9379035 (Version 1)
Quarter: 2013Q3

REPORT INFORMATION
  Report Type: Spontaneous
  Country: CN (occurrence: CN)
  Receive Date: 20130702
  Receipt Date: 20130702
  Transmission Date: 20140515
  Serious: Yes (Hospitalization)
  Sender: FDA-Public Use
  Company Number: CN-BRISTOL-MYERS SQUIBB COMPANY-19037746

PATIENT
  Age: 60 Year
  Sex: Female

DRUGS (1)
  1. IRBESARTAN [Suspect]
     Indication: HYPERTENSION
     Dosage: 1DF:1 TABS
     Route: 048
     Dates: start: 2010

REACTIONS (2)
  - Blood pressure increased [Recovered/Resolved]
  - Suspected counterfeit product [Unknown]
